FAERS Safety Report 10427719 (Version 2)
Quarter: 2014Q3

REPORT INFORMATION
  Report Type: Report from Study
  Country: KR (occurrence: KR)
  Receive Date: 20140903
  Receipt Date: 20140916
  Transmission Date: 20150326
  Serious: Yes (Death)
  Sender: FDA-Public Use
  Company Number: KR-KOWA-2014S1001080

PATIENT
  Age: 86 Year
  Sex: Female

DRUGS (6)
  1. HEBRON-F [Concomitant]
     Indication: ASTHMA
     Dates: start: 20091124, end: 20140526
  2. PREGREL [Concomitant]
     Dates: start: 20140408, end: 20140526
  3. ASPIRIN PROTECT [Concomitant]
     Active Substance: ASPIRIN
     Dates: start: 20140401, end: 20140526
  4. BRILINTA [Concomitant]
     Active Substance: TICAGRELOR
     Dates: start: 20140401, end: 20140407
  5. LIVALO [Suspect]
     Active Substance: PITAVASTATIN CALCIUM
     Indication: HYPERLIPIDAEMIA
     Route: 048
     Dates: start: 20140402, end: 20140526
  6. AZEPTIN /00884002/ [Concomitant]
     Indication: ASTHMA
     Dates: start: 20030220, end: 20140526

REACTIONS (1)
  - Death [Fatal]

NARRATIVE: CASE EVENT DATE: 20140526
